FAERS Safety Report 6919120-2 (Version None)
Quarter: 2010Q3

REPORT INFORMATION
  Report Type: 
  Country: None (occurrence: None)
  Receive Date: 20100727
  Receipt Date: 20100713
  Transmission Date: 20110219
  Serious: No
  Sender: FDA-Public Use
  Company Number: 2010-00527

PATIENT
  Age: 58 Year
  Sex: Female
  Weight: 60.782 kg

DRUGS (1)
  1. ZICAM COLD REMEDY NASAL GEL [Suspect]
     Dosage: ONE DOSE, ONE DOSE
     Dates: start: 20100713, end: 20100713

REACTIONS (1)
  - ANOSMIA [None]
